FAERS Safety Report 5333225-1 (Version None)
Quarter: 2007Q2

REPORT INFORMATION
  Report Type: 
  Country: None (occurrence: None)
  Receive Date: 20070524
  Receipt Date: 20070517
  Transmission Date: 20071010
  Serious: Yes (Other)
  Sender: FDA-Public Use
  Company Number: PHEH2007US07272

PATIENT
  Sex: Male

DRUGS (6)
  1. PREDNISONE TAB [Concomitant]
  2. CASODEX [Concomitant]
  3. SYNTHROID [Concomitant]
  4. LUPRON [Concomitant]
  5. NIFEDIPINE [Concomitant]
  6. ZOMETA [Suspect]
     Dosage: UNK, QMO
     Route: 042

REACTIONS (1)
  - DEAFNESS BILATERAL [None]
